FAERS Safety Report 11055286 (Version 3)
Quarter: 2015Q4

REPORT INFORMATION
  Report Type: Report from Study
  Country: CA (occurrence: CA)
  Receive Date: 20150422
  Receipt Date: 20151127
  Transmission Date: 20160304
  Serious: Yes (Other)
  Sender: FDA-Public Use
  Company Number: CA-JNJFOC-20140817202

PATIENT
  Age: 23 Year
  Sex: Female
  Weight: 60 kg

DRUGS (9)
  1. ASCORBIC ACID. [Concomitant]
     Active Substance: ASCORBIC ACID
     Indication: ROUTINE HEALTH MAINTENANCE
     Route: 048
     Dates: start: 201311
  2. IRON [Concomitant]
     Active Substance: IRON
     Indication: BLOOD IRON DECREASED
     Route: 065
     Dates: start: 201408
  3. REMICADE [Suspect]
     Active Substance: INFLIXIMAB
     Indication: CROHN^S DISEASE
     Route: 042
     Dates: start: 20130802
  4. FOLIC ACID. [Concomitant]
     Active Substance: FOLIC ACID
     Route: 048
     Dates: start: 201408, end: 20150403
  5. VITAMIN D [Concomitant]
     Active Substance: CHOLECALCIFEROL
     Route: 048
     Dates: start: 20131101
  6. PRENATAL VITAMIN [Concomitant]
     Active Substance: VITAMINS
     Route: 065
  7. REMICADE [Suspect]
     Active Substance: INFLIXIMAB
     Indication: COLITIS ULCERATIVE
     Route: 042
     Dates: start: 20130802
  8. PREVACID [Suspect]
     Active Substance: LANSOPRAZOLE
     Indication: GASTROOESOPHAGEAL REFLUX DISEASE
     Route: 048
     Dates: start: 20140623
  9. FOLIC ACID W/IRON/MINERALS NOS/VITAMINS NOS [Concomitant]
     Route: 048
     Dates: start: 201408, end: 20150403

REACTIONS (6)
  - Endometriosis [Unknown]
  - Caesarean section [Recovered/Resolved]
  - Bronchitis [Unknown]
  - Polymorphic eruption of pregnancy [Recovered/Resolved]
  - Exposure during pregnancy [Recovered/Resolved]
  - Colitis [Unknown]

NARRATIVE: CASE EVENT DATE: 201407
